FAERS Safety Report 6121793-1 (Version None)
Quarter: 2009Q1

REPORT INFORMATION
  Report Type: 
  Country: None (occurrence: None)
  Receive Date: 20090313
  Receipt Date: 20090313
  Transmission Date: 20090719
  Serious: Yes (Hospitalization)
  Sender: FDA-Public Use
  Company Number: None

PATIENT
  Age: 58 Year
  Sex: Male
  Weight: 78.4 kg

DRUGS (1)
  1. PHENYTOIN [Suspect]
     Indication: CONVULSION PROPHYLAXIS

REACTIONS (4)
  - DIZZINESS [None]
  - FALL [None]
  - HEAD INJURY [None]
  - IMPRISONMENT [None]
